FAERS Safety Report 10395976 (Version 1)
Quarter: 2014Q1

REPORT INFORMATION
  Report Type: Spontaneous
  Country: US (occurrence: None)
  Receive Date: 20130724
  Receipt Date: 20130724
  Transmission Date: 20141002
  Serious: Yes (Disabling)
  Sender: FDA-Public Use
  Company Number: PHEH2012US008454

PATIENT
  Age: 65 Year
  Sex: Female
  Weight: 59.9 kg

DRUGS (12)
  1. RECLAST (ZOLEDRONATE) SOLUTION FOR INJECTION [Suspect]
     Indication: OSTEOPOROSIS
     Route: 042
     Dates: start: 201202
  2. CLARITIN (LORATADINE) [Concomitant]
  3. SYNTHROID (LEVOTHYROXINE SODIUM) [Concomitant]
  4. HCT (HYDROCHLOROTHIAZIDE) [Concomitant]
  5. PREMARIN (ESTROGENS CONJUGATED) [Concomitant]
  6. XANAX (ALPRAZOLAM) [Concomitant]
  7. SIMVASTATIN [Suspect]
  8. DOXYCYCLINE [Concomitant]
  9. VITAMIN D (ERGOCALCIFEROL) [Concomitant]
  10. LISINOPRIL [Concomitant]
  11. AMLODIPINE [Concomitant]
  12. FOLIC ACID [Concomitant]

REACTIONS (2)
  - Arthralgia [None]
  - Pain [None]
